FAERS Safety Report 5277649-X (Version None)
Quarter: 2007Q1

REPORT INFORMATION
  Report Type: 
  Country: None (occurrence: None)
  Receive Date: 20070327
  Receipt Date: 20070321
  Transmission Date: 20070707
  Serious: Yes (Other)
  Sender: FDA-Public Use
  Company Number: DE-BOEHRINGER INGELHEIM PHARMACEUTICALS, INC.-2007-DE-01736DE

PATIENT
  Sex: Male
  Weight: 85 kg

DRUGS (1)
  1. MICARDIS HCT [Suspect]
     Indication: HYPERTENSION
     Dosage: 40 MG TELMISARTAN, 12,5 MG HCT
     Dates: start: 20050101

REACTIONS (2)
  - INFECTIVE TENOSYNOVITIS [None]
  - TENDON RUPTURE [None]
